FAERS Safety Report 6939419-3 (Version None)
Quarter: 2010Q3

REPORT INFORMATION
  Report Type: 
  Country: None (occurrence: None)
  Receive Date: 20100819
  Receipt Date: 20100804
  Transmission Date: 20110219
  Serious: Yes (Life-Threatening)
  Sender: FDA-Public Use
  Company Number: GB-DEXPHARM-20101192

PATIENT
  Age: 35 Year
  Sex: Female

DRUGS (8)
  1. CHLORHEXIDINE GLUCONATE [Suspect]
     Indication: SURGERY
     Dosage: TOPICAL
     Route: 061
     Dates: start: 20100625, end: 20100625
  2. GELOFUSINE [Suspect]
     Indication: HYPOTENSION
     Dosage: 500 ML MILLILITRE(S) INTRACAVERNOUS
     Route: 017
     Dates: start: 20100625, end: 20100625
  3. ELOCON [Concomitant]
  4. FOLIC ACID [Concomitant]
  5. GAVISCON [Concomitant]
  6. HYDROCORTISONE [Concomitant]
  7. TERBUTALINE SULFATE [Concomitant]
  8. GENERAL ANAESTHETIC [Concomitant]

REACTIONS (9)
  - ANAPHYLACTIC REACTION [None]
  - BLOOD PRESSURE DECREASED [None]
  - BRONCHOSPASM [None]
  - DRUG SPECIFIC ANTIBODY PRESENT [None]
  - LOWER RESPIRATORY TRACT INFECTION [None]
  - OEDEMA PERIPHERAL [None]
  - RHINORRHOEA [None]
  - SWELLING FACE [None]
  - TRYPTASE INCREASED [None]
